FAERS Safety Report 8247049-9 (Version None)
Quarter: 2012Q1

REPORT INFORMATION
  Report Type: 
  Country: None (occurrence: None)
  Receive Date: 20120327
  Receipt Date: 20120312
  Transmission Date: 20120608
  Serious: Yes (Death, Hospitalization)
  Sender: FDA-Public Use
  Company Number: LTI2011A00144

PATIENT
  Age: 83 Year
  Sex: Male

DRUGS (5)
  1. FENOFIBRATE [Concomitant]
  2. PIOGLITAZONE HYDROCHLORIDE/METFORMIN HYDROCHLORIDE [Suspect]
     Dosage: (1 IN 2 D)
     Route: 048
     Dates: start: 20080212
  3. ALLUPURINOL (ALLOPURINOL) [Concomitant]
  4. LEVOTHYROXINE SODIUM [Concomitant]
  5. NEXIUM [Concomitant]

REACTIONS (5)
  - URETHRAL POLYP [None]
  - GENERAL PHYSICAL HEALTH DETERIORATION [None]
  - LUNG DISORDER [None]
  - PLEURISY [None]
  - BLADDER NEOPLASM [None]
